FAERS Safety Report 6228850-X (Version None)
Quarter: 2009Q2

REPORT INFORMATION
  Report Type: 
  Country: None (occurrence: None)
  Receive Date: 20090615
  Receipt Date: 20071016
  Transmission Date: 20091009
  Serious: Yes (Death, Other)
  Sender: FDA-Public Use
  Company Number: US-ASTRAZENECA-2007UW18615

PATIENT
  Age: 21532 Day
  Sex: Female
  Weight: 59.4 kg

DRUGS (13)
  1. SEROQUEL [Suspect]
     Route: 048
  2. ZYPREXA [Concomitant]
  3. PROMETHAZINE HCL [Concomitant]
     Route: 048
     Dates: start: 20040910
  4. SPIRONOLACTONE [Concomitant]
     Route: 048
     Dates: start: 20040910
  5. MAG-OX [Concomitant]
     Route: 048
     Dates: start: 20060929
  6. PRILOSEC [Concomitant]
     Route: 048
     Dates: start: 20050705
  7. LACTULOSE [Concomitant]
     Dosage: ONE TEA SPOON FULL, THREE TIMES A DAY
     Route: 048
     Dates: start: 20031107
  8. FOLIC ACID [Concomitant]
     Route: 048
     Dates: start: 20060830
  9. METOCLOPRAMIDE [Concomitant]
     Route: 048
     Dates: start: 20060830
  10. ATENOLOL [Concomitant]
     Route: 048
     Dates: start: 20050705
  11. POTASSIUM CHLORIDE [Concomitant]
     Dosage: THREE TIMES A DAY
     Route: 048
     Dates: start: 20020410
  12. LISINOPRIL [Concomitant]
     Route: 048
     Dates: start: 20060725
  13. ZOLOFT [Concomitant]
     Route: 048
     Dates: start: 20020206

REACTIONS (9)
  - ASCITES [None]
  - CRYPTOGENIC CIRRHOSIS [None]
  - DIABETES MELLITUS [None]
  - DIABETES MELLITUS INADEQUATE CONTROL [None]
  - DYSPNOEA [None]
  - GENERALISED OEDEMA [None]
  - HEPATIC CIRRHOSIS [None]
  - HEPATIC FAILURE [None]
  - TYPE 1 DIABETES MELLITUS [None]
